FAERS Safety Report 9057928 (Version 1)
Quarter: 2013Q1

REPORT INFORMATION
  Report Type: Spontaneous
  Country: US (occurrence: None)
  Receive Date: 20130204
  Receipt Date: 20130204
  Transmission Date: 20140127
  Serious: Yes (Hospitalization)
  Sender: FDA-Public Use
  Company Number: None

PATIENT
  Sex: Male
  Weight: 72.73 kg

DRUGS (1)
  1. IRINOTECAN [Suspect]

REACTIONS (2)
  - Inflammatory bowel disease [None]
  - Dehydration [None]
